FAERS Safety Report 23078709 (Version 1)
Quarter: 2023Q4

REPORT INFORMATION
  Report Type: Spontaneous
  Country: FR (occurrence: FR)
  Receive Date: 20231018
  Receipt Date: 20231018
  Transmission Date: 20240110
  Serious: Yes (Hospitalization)
  Sender: FDA-Public Use
  Company Number: None

PATIENT
  Age: 34 Year
  Sex: Male

DRUGS (13)
  1. CIPROFLOXACIN [Interacting]
     Active Substance: CIPROFLOXACIN
     Indication: Prostatitis
     Route: 048
     Dates: start: 20230902, end: 20230914
  2. CYAMEMAZINE [Interacting]
     Active Substance: CYAMEMAZINE
     Indication: Bipolar I disorder
     Route: 048
     Dates: end: 20230914
  3. BACLOFEN [Interacting]
     Active Substance: BACLOFEN
     Indication: Muscle spasticity
     Route: 048
     Dates: end: 20230914
  4. KETAMINE [Interacting]
     Active Substance: KETAMINE
     Indication: Multiple sclerosis relapse
     Dosage: NON PR?CIS?E
     Route: 042
     Dates: start: 20230902, end: 20230905
  5. DEPAKOTE [Interacting]
     Active Substance: DIVALPROEX SODIUM
     Indication: Bipolar I disorder
     Route: 048
     Dates: end: 20230914
  6. LAMALINE (ACETAMINOPHEN\CAFFEINE\OPIUM) [Interacting]
     Active Substance: ACETAMINOPHEN\CAFFEINE\OPIUM
     Indication: Neuralgia
     Dosage: NON PR?CIS?E
     Route: 048
     Dates: end: 20230914
  7. TRIMEPRAZINE [Interacting]
     Active Substance: TRIMEPRAZINE
     Indication: Insomnia
     Route: 048
     Dates: end: 20230914
  8. EFFEXOR [Interacting]
     Active Substance: VENLAFAXINE HYDROCHLORIDE
     Indication: Neuralgia
     Route: 048
     Dates: end: 20230914
  9. RIVOTRIL [Interacting]
     Active Substance: CLONAZEPAM
     Indication: Neuralgia
     Route: 048
     Dates: end: 20230914
  10. OXYCODONE HYDROCHLORIDE [Interacting]
     Active Substance: OXYCODONE HYDROCHLORIDE
     Indication: Neuralgia
     Route: 048
     Dates: end: 20230914
  11. VESICARE [Interacting]
     Active Substance: SOLIFENACIN SUCCINATE
     Indication: Pollakiuria
     Route: 048
     Dates: end: 20230914
  12. AMITRIPTYLINE HYDROCHLORIDE [Interacting]
     Active Substance: AMITRIPTYLINE HYDROCHLORIDE
     Indication: Bipolar I disorder
     Route: 048
     Dates: end: 20230914
  13. OXYCONTIN [Interacting]
     Active Substance: OXYCODONE HYDROCHLORIDE
     Indication: Neuralgia
     Route: 048
     Dates: end: 20230914

REACTIONS (11)
  - Hypertonia [Recovered/Resolved]
  - Myoclonus [Recovered/Resolved]
  - Hypertension [Recovered/Resolved]
  - Sputum increased [Recovered/Resolved]
  - Vomiting [Recovered/Resolved]
  - Dyspnoea [Recovered/Resolved]
  - Psychomotor hyperactivity [Recovered/Resolved]
  - Somnolence [Recovered/Resolved]
  - Confusional state [Recovered/Resolved]
  - Hyperhidrosis [Recovered/Resolved]
  - Tachycardia [Recovered/Resolved]

NARRATIVE: CASE EVENT DATE: 20230914
